FAERS Safety Report 11087932 (Version 1)
Quarter: 2015Q2

REPORT INFORMATION
  Report Type: Spontaneous
  Country: JP (occurrence: None)
  Receive Date: 20150430
  Receipt Date: 20150430
  Transmission Date: 20150821
  Serious: Yes (Hospitalization)
  Sender: FDA-Public Use
  Company Number: 2015050659

PATIENT
  Sex: Female

DRUGS (2)
  1. MINIRIN [Suspect]
     Active Substance: DESMOPRESSIN ACETATE
     Indication: DIABETES INSIPIDUS
     Route: 048
     Dates: start: 201309, end: 201402
  2. DESMOPRESSIN ACETATE (DESMORESSIN ACETATE) [Suspect]
     Active Substance: DESMOPRESSIN ACETATE
     Indication: DIABETES INSIPIDUS
     Route: 045
     Dates: start: 201401

REACTIONS (4)
  - Delirium [None]
  - Loss of consciousness [None]
  - Hyponatraemia [None]
  - Cognitive disorder [None]

NARRATIVE: CASE EVENT DATE: 201402
